FAERS Safety Report 4487850-0 (Version None)
Quarter: 2004Q4

REPORT INFORMATION
  Report Type: 
  Country: None (occurrence: None)
  Receive Date: 20041025
  Receipt Date: 20041008
  Transmission Date: 20050328
  Serious: Yes (Other)
  Sender: FDA-Public Use
  Company Number: L04-ITA-05867-01

PATIENT
  Age: 29 Year
  Sex: Female

DRUGS (4)
  1. CARBAMAZEPINE [Suspect]
     Indication: PARTIAL SEIZURES
     Dosage: 1600 MG QD
  2. FLUCONAZOLE [Suspect]
     Indication: MICROSPORUM INFECTION
     Dosage: 150 MG QD
  3. LAMOTRIGINE [Concomitant]
  4. BARBEXACLONE [Concomitant]

REACTIONS (15)
  - ANTICONVULSANT DRUG LEVEL ABOVE THERAPEUTIC [None]
  - CEREBELLAR SYNDROME [None]
  - DIPLOPIA [None]
  - DIZZINESS [None]
  - DRUG INTERACTION [None]
  - DRUG TOXICITY [None]
  - GAIT DISTURBANCE [None]
  - GAMMA-GLUTAMYLTRANSFERASE INCREASED [None]
  - NAUSEA [None]
  - NYSTAGMUS [None]
  - OSCILLOPSIA [None]
  - VISION BLURRED [None]
  - VISUAL TRACKING TEST NORMAL [None]
  - VOMITING [None]
  - WHITE BLOOD CELL COUNT DECREASED [None]
